FAERS Safety Report 4370682-1 (Version None)
Quarter: 2004Q2

REPORT INFORMATION
  Report Type: 
  Country: None (occurrence: None)
  Receive Date: 20040601
  Receipt Date: 20040514
  Transmission Date: 20050107
  Serious: Yes (Hospitalization)
  Sender: FDA-Public Use
  Company Number: 6008873

PATIENT
  Age: 77 Year
  Sex: Female

DRUGS (5)
  1. ENADURA 5 MG (TABLETS) (ENALAPRIL) [Suspect]
     Indication: HYPERTENSION
     Dosage: 10 MG (5 MG, 2 IN 1 D)
     Route: 048
     Dates: start: 20020101
  2. GLIBENCLAMID-RATIOPHARM (TABLETS) (GLIBENCLAMIDE) [Suspect]
     Indication: DIABETES MELLITUS
     Dosage: 10,5 MG (3,5 MG, 3 IN 1 D)
     Route: 048
     Dates: start: 20020101, end: 20040623
  3. METFORMIN HCL [Suspect]
     Indication: DIABETES MELLITUS
     Dosage: 1050 MG (350 MG, 3 IN 1 D)
     Route: 048
     Dates: start: 20000101
  4. CORDANUM (TABLETS) (TALINDOLOL) [Suspect]
     Indication: HYPERTENSION
     Dosage: 200 MG (100 MG, 2 IN 1 D)
     Route: 048
     Dates: start: 20000101
  5. ASS-ISIS (TABLETS) (ACETYLSALICYLIC ACID) [Concomitant]

REACTIONS (3)
  - BLOOD PRESSURE INCREASED [None]
  - DRUG INTERACTION [None]
  - HYPOGLYCAEMIA [None]
